FAERS Safety Report 19427045 (Version 6)
Quarter: 2021Q3

REPORT INFORMATION
  Report Type: Report from Study
  Country: US (occurrence: US)
  Receive Date: 20210616
  Receipt Date: 20210903
  Transmission Date: 20211014
  Serious: Yes (Other)
  Sender: FDA-Public Use
  Company Number: NVSC2021US130659

PATIENT
  Sex: Female

DRUGS (1)
  1. PIQRAY [Suspect]
     Active Substance: ALPELISIB
     Indication: BREAST CANCER
     Dosage: 300 MG, QD
     Route: 048
     Dates: start: 202105

REACTIONS (11)
  - Oral pain [Unknown]
  - Dry mouth [Unknown]
  - Diarrhoea [Unknown]
  - Constipation [Unknown]
  - Feeding disorder [Recovering/Resolving]
  - Candida infection [Recovering/Resolving]
  - Weight decreased [Recovering/Resolving]
  - Hyperglycaemia [Unknown]
  - Decreased appetite [Unknown]
  - Pollakiuria [Unknown]
  - Aphthous ulcer [Unknown]
